FAERS Safety Report 17371928 (Version 1)
Quarter: 2020Q1

REPORT INFORMATION
  Report Type: Spontaneous
  Country: US (occurrence: US)
  Receive Date: 20200205
  Receipt Date: 20200205
  Transmission Date: 20200409
  Serious: Yes (Death, Hospitalization)
  Sender: FDA-Public Use
  Company Number: US-ALVOGEN-2020-ALVOGEN-102703

PATIENT
  Age: 57 Year
  Sex: Male

DRUGS (3)
  1. NAPROXEN. [Suspect]
     Active Substance: NAPROXEN
     Indication: SUICIDE ATTEMPT
     Route: 048
  2. MIRTAZAPINE. [Suspect]
     Active Substance: MIRTAZAPINE
     Indication: SUICIDE ATTEMPT
     Route: 048
  3. ROPINIROLE. [Suspect]
     Active Substance: ROPINIROLE
     Indication: SUICIDE ATTEMPT
     Route: 048

REACTIONS (1)
  - Completed suicide [Fatal]
